FAERS Safety Report 8215433-5 (Version None)
Quarter: 2012Q1

REPORT INFORMATION
  Report Type: 
  Country: None (occurrence: None)
  Receive Date: 20120316
  Receipt Date: 20120306
  Transmission Date: 20120608
  Serious: Yes (Hospitalization, Other)
  Sender: FDA-Public Use
  Company Number: US-ELI_LILLY_AND_COMPANY-US201007007481

PATIENT
  Sex: Female

DRUGS (17)
  1. FORTEO [Suspect]
     Dosage: 20 UG, QD
     Route: 065
     Dates: end: 20110227
  2. CALTRATE PLUS-D [Concomitant]
     Dosage: UNK, QD
  3. NORCO [Concomitant]
     Indication: PAIN
     Dosage: UNK, PRN
  4. PROTONIX [Concomitant]
     Dosage: UNK, QD
  5. VITAMIN D [Concomitant]
     Dosage: 1000 U, QD
  6. LIDODERM [Concomitant]
     Dosage: UNK, PRN
  7. LISINOPRIL [Concomitant]
     Dosage: 20 MG, QD
  8. FORTEO [Suspect]
     Indication: OSTEOPOROSIS
     Dosage: 20 UG, QD
     Route: 065
  9. CELEBREX [Concomitant]
     Dosage: 200 MG, QD
  10. FORTEO [Suspect]
     Dosage: 20 UG, QD
     Dates: start: 20120204
  11. MIACALCIN [Concomitant]
  12. LASIX [Concomitant]
     Indication: FLUID RETENTION
     Dosage: 20 MG, QD
  13. MULTI-VITAMIN [Concomitant]
     Dosage: UNK, QD
  14. FORTEO [Suspect]
     Dosage: 20 UG, QD
     Route: 065
  15. FORTEO [Suspect]
     Dosage: 20 UG, QD
     Route: 065
  16. ASPIRIN [Concomitant]
     Dosage: 1 DF, QD
  17. FORTEO [Suspect]
     Dosage: 20 UG, QD
     Route: 065

REACTIONS (19)
  - FALL [None]
  - WOUND COMPLICATION [None]
  - BACK PAIN [None]
  - LIMB INJURY [None]
  - IMPAIRED HEALING [None]
  - URINARY TRACT INFECTION [None]
  - FLUID RETENTION [None]
  - SKIN INJURY [None]
  - DIARRHOEA [None]
  - HIP FRACTURE [None]
  - OEDEMA PERIPHERAL [None]
  - WOUND SECRETION [None]
  - OPEN WOUND [None]
  - FEELING ABNORMAL [None]
  - SCOLIOSIS [None]
  - BACK DISORDER [None]
  - WOUND HAEMORRHAGE [None]
  - INFECTION [None]
  - LACERATION [None]
